FAERS Safety Report 9496699 (Version 2)
Quarter: 2013Q4

REPORT INFORMATION
  Report Type: Spontaneous
  Country: DE (occurrence: DE)
  Receive Date: 20130904
  Receipt Date: 20131112
  Transmission Date: 20140711
  Serious: Yes (Death, Other)
  Sender: FDA-Public Use
  Company Number: DE-CELGENEUS-062-21660-13081804

PATIENT
  Age: 43 Year
  Sex: Female

DRUGS (2)
  1. ABRAXANE [Suspect]
     Indication: SQUAMOUS CELL CARCINOMA OF THE CERVIX
     Route: 041
     Dates: start: 20130131, end: 20130715
  2. ABRAXANE [Suspect]
     Indication: DISEASE PROGRESSION

REACTIONS (1)
  - Cachexia [Fatal]
